FAERS Safety Report 5947476-6 (Version None)
Quarter: 2008Q4

REPORT INFORMATION
  Report Type: 
  Country: None (occurrence: None)
  Receive Date: 20081110
  Receipt Date: 20081030
  Transmission Date: 20090506
  Serious: Yes (Death, Other)
  Sender: FDA-Public Use
  Company Number: PHHY2008GB27327

PATIENT
  Sex: Female
  Weight: 80.8 kg

DRUGS (8)
  1. ZOMETA [Suspect]
     Indication: METASTASES TO BONE
     Dosage: 4 MG EVERY 4 WEEKS
     Dates: start: 20040303, end: 20050804
  2. ZOMETA [Suspect]
     Indication: BREAST CANCER
  3. TAMOXIFEN [Concomitant]
     Dosage: 20 MG
     Route: 048
     Dates: start: 20031201, end: 20041001
  4. ZOLADEX [Concomitant]
     Dosage: 3.6 MG PER 4 WEEKS
     Route: 058
     Dates: start: 20040301, end: 20051201
  5. CYCLOPHOSPHAMID W/DOXORUBICIN [Concomitant]
     Dosage: EVERY 3 WEEKS X 6
     Route: 042
     Dates: start: 20060126, end: 20060615
  6. TAXOTERE [Concomitant]
     Dosage: 3 WEEKS X 6
     Route: 042
     Dates: start: 20061114, end: 20070308
  7. CAPECITABINE [Concomitant]
     Dosage: EVERY 3 WEEKS X 3
     Route: 048
     Dates: start: 20070621, end: 20070809
  8. VINORELBINE [Concomitant]

REACTIONS (6)
  - BONE LESION [None]
  - BREAST CANCER METASTATIC [None]
  - GINGIVAL INFECTION [None]
  - OSTEOMYELITIS [None]
  - SWELLING [None]
  - TOOTH EXTRACTION [None]
